FAERS Safety Report 7011034-5 (Version None)
Quarter: 2010Q3

REPORT INFORMATION
  Report Type: 
  Country: None (occurrence: None)
  Receive Date: 20100922
  Receipt Date: 20100922
  Transmission Date: 20110219
  Serious: Yes (Other)
  Sender: FDA-Public Use
  Company Number: None

PATIENT
  Age: 74 Year
  Sex: Male
  Weight: 80.7403 kg

DRUGS (1)
  1. AVODART [Suspect]
     Indication: PROSTATOMEGALY
     Dosage: 1 PER DAY OTHER
     Route: 050
     Dates: start: 20100615, end: 20100815

REACTIONS (3)
  - ARTHRALGIA [None]
  - MYALGIA [None]
  - RASH [None]
